FAERS Safety Report 7450709-0 (Version None)
Quarter: 2011Q2

REPORT INFORMATION
  Report Type: 
  Country: None (occurrence: None)
  Receive Date: 20110502
  Receipt Date: 20110418
  Transmission Date: 20111010
  Serious: Yes (Other)
  Sender: FDA-Public Use
  Company Number: TR-CTI_01348_2011

PATIENT
  Sex: Female
  Weight: 65 kg

DRUGS (1)
  1. FACTIVE [Suspect]
     Indication: PNEUMONIA
     Route: 048
     Dates: start: 20110309, end: 20110318

REACTIONS (2)
  - URTICARIA [None]
  - ANGIOEDEMA [None]
